APPROVED DRUG PRODUCT: IBUPROFEN
Active Ingredient: IBUPROFEN
Strength: 200MG
Dosage Form/Route: TABLET;ORAL
Application: A070733 | Product #001
Applicant: P AND L DEVELOPMENT LLC DBA PLD DEVELOPMENTS LLC
Approved: Sep 19, 1986 | RLD: No | RS: No | Type: DISCN